FAERS Safety Report 7808263-7 (Version None)
Quarter: 2011Q4

REPORT INFORMATION
  Report Type: 
  Country: None (occurrence: None)
  Receive Date: 20111012
  Receipt Date: 20111004
  Transmission Date: 20120403
  Serious: Yes (Hospitalization)
  Sender: FDA-Public Use
  Company Number: US-BIOGENIDEC-2011BI023967

PATIENT
  Age: 54 Year
  Sex: Female

DRUGS (3)
  1. NERVE PILL [Concomitant]
     Indication: DEPRESSION
  2. DEPRESSION MEDICATION [Concomitant]
     Indication: DEPRESSION
  3. TYSABRI [Suspect]
     Indication: MULTIPLE SCLEROSIS
     Route: 042
     Dates: start: 20070323

REACTIONS (4)
  - WEIGHT DECREASED [None]
  - SOMNOLENCE [None]
  - OEDEMA PERIPHERAL [None]
  - BRONCHITIS [None]
